FAERS Safety Report 9332356 (Version 3)
Quarter: 2014Q2

REPORT INFORMATION
  Report Type: Report from Study
  Country: DE (occurrence: DE)
  Receive Date: 20130606
  Receipt Date: 20140610
  Transmission Date: 20141212
  Serious: Yes (Hospitalization)
  Sender: FDA-Public Use
  Company Number: PHHY2013DE056770

PATIENT
  Sex: Female
  Weight: 49 kg

DRUGS (9)
  1. AFINITOR [Suspect]
     Indication: BREAST CANCER METASTATIC
     Dosage: 10 MG, QD
     Route: 048
     Dates: start: 20130419, end: 20130513
  2. EXEMESTANE [Suspect]
     Indication: BREAST CANCER METASTATIC
     Dosage: 25 MG, QD
     Route: 048
     Dates: start: 20130419, end: 20130513
  3. METFORMIN [Concomitant]
     Indication: TYPE 2 DIABETES MELLITUS
     Dosage: 500 MG, DAILY
     Route: 048
     Dates: start: 20130225
  4. SIMVASTATIN [Concomitant]
     Dosage: 40 MG, DAILY
     Dates: start: 20130225
  5. ISOPTIN [Concomitant]
     Indication: HYPERTENSION
     Dosage: 120 MG, DAILY
     Dates: start: 20130225
  6. BECLOMETASONE [Concomitant]
     Dosage: 0.4 MG, DAILY
     Dates: start: 20130225
  7. CLOPIDOGREL [Concomitant]
     Dosage: 75 MG, DAILY
     Dates: start: 20130225
  8. KELTICAN                           /00619201/ [Concomitant]
     Dosage: 20 MG, DAILY
     Dates: start: 20130306
  9. CALCIGEN [Concomitant]
     Indication: BONE DISORDER

REACTIONS (6)
  - General physical health deterioration [Unknown]
  - Bronchopneumonia [Recovering/Resolving]
  - Dehydration [Recovered/Resolved]
  - Pyrexia [Recovered/Resolved]
  - Breast cancer metastatic [Unknown]
  - Malignant neoplasm progression [Unknown]
